FAERS Safety Report 26006993 (Version 1)
Quarter: 2025Q4

REPORT INFORMATION
  Report Type: Report from Study
  Country: KZ (occurrence: KZ)
  Receive Date: 20251106
  Receipt Date: 20251106
  Transmission Date: 20260118
  Serious: Yes (Other)
  Sender: JOHNSON AND JOHNSON
  Company Number: KZ-JNJFOC-20251145398

PATIENT
  Age: 47 Year
  Sex: Male

DRUGS (1)
  1. REMICADE [Suspect]
     Active Substance: INFLIXIMAB
     Indication: Colitis ulcerative
     Route: 065

REACTIONS (4)
  - Blood loss anaemia [Unknown]
  - Colitis ulcerative [Recovering/Resolving]
  - Urticaria [Unknown]
  - Drug ineffective [Unknown]
